FAERS Safety Report 8074764-2 (Version None)
Quarter: 2012Q1

REPORT INFORMATION
  Report Type: 
  Country: None (occurrence: None)
  Receive Date: 20120126
  Receipt Date: 20120123
  Transmission Date: 20120608
  Serious: No
  Sender: FDA-Public Use
  Company Number: US-PFIZER INC-2012018667

PATIENT
  Sex: Female
  Weight: 113.38 kg

DRUGS (3)
  1. PRISTIQ [Suspect]
     Indication: DEPRESSION
     Dosage: 50 MG, DAILY
     Route: 048
     Dates: start: 20110101
  2. PRISTIQ [Suspect]
     Dosage: UNK
     Route: 048
     Dates: start: 20110101, end: 20120121
  3. METFORMIN [Concomitant]
     Indication: TYPE 2 DIABETES MELLITUS
     Dosage: 1000 MG, 2X/DAY

REACTIONS (4)
  - EMOTIONAL DISORDER [None]
  - PAIN [None]
  - DEPRESSION [None]
  - ANXIETY [None]
